FAERS Safety Report 5618984-2 (Version None)
Quarter: 2008Q1

REPORT INFORMATION
  Report Type: 
  Country: None (occurrence: None)
  Receive Date: 20080207
  Receipt Date: 20080131
  Transmission Date: 20080703
  Serious: Yes (Hospitalization, Other)
  Sender: FDA-Public Use
  Company Number: US-BOEHRINGER INGELHEIM GMBH, GERMANY-2007-BP-25105BP

PATIENT
  Age: 58 Year
  Sex: Female

DRUGS (14)
  1. MOBIC [Suspect]
     Indication: OSTEOARTHRITIS
     Dates: start: 20070214, end: 20070222
  2. MOBIC [Suspect]
     Dates: start: 20070222, end: 20071203
  3. BENADRYL [Concomitant]
  4. POTASSIUM CHLORIDE [Concomitant]
  5. FUROSEMIDE [Concomitant]
  6. CLONIDINE [Concomitant]
  7. MICARDIS HCT [Concomitant]
  8. METFORMIN HCL [Concomitant]
  9. IRON [Concomitant]
  10. VITAMIN B-12 [Concomitant]
  11. ASCORBIC ACID [Concomitant]
  12. PEPCID AC [Concomitant]
     Indication: GASTROOESOPHAGEAL REFLUX DISEASE
     Dates: start: 20070901
  13. NIFEDIPINE [Concomitant]
  14. ESCITALOPRAM [Concomitant]

REACTIONS (6)
  - ABDOMINAL PAIN [None]
  - BLOOD PRESSURE INCREASED [None]
  - DYSPEPSIA [None]
  - GASTROOESOPHAGEAL REFLUX DISEASE [None]
  - HIATUS HERNIA [None]
  - MELAENA [None]
